FAERS Safety Report 23471031 (Version 8)
Quarter: 2024Q3

REPORT INFORMATION
  Report Type: Report from Study
  Country: IL (occurrence: IL)
  Receive Date: 20240202
  Receipt Date: 20240828
  Transmission Date: 20241017
  Serious: Yes (Other)
  Sender: NOVARTIS
  Company Number: IL-002147023-NVSC2023IL268389

PATIENT
  Age: 76 Year
  Sex: Female

DRUGS (5)
  1. KISQALI [Suspect]
     Active Substance: RIBOCICLIB
     Indication: Breast cancer metastatic
     Dosage: 600 MG, QD
     Route: 065
     Dates: start: 20231206
  2. KISQALI [Suspect]
     Active Substance: RIBOCICLIB
     Dosage: 400 MG, UNKNOWN
     Route: 065
  3. KISQALI [Suspect]
     Active Substance: RIBOCICLIB
     Dosage: 400 MG, QD
     Route: 065
     Dates: start: 20240208
  4. KISQALI [Suspect]
     Active Substance: RIBOCICLIB
     Dosage: 400 MG, QD
     Route: 048
  5. LETROZOLE [Concomitant]
     Active Substance: LETROZOLE
     Indication: Breast cancer metastatic
     Dosage: 2.5 MG, UNKNOWN
     Route: 065
     Dates: start: 202312

REACTIONS (7)
  - Electrocardiogram QT prolonged [Recovered/Resolved]
  - Neutrophil count decreased [Recovered/Resolved]
  - Neutrophil count decreased [Recovering/Resolving]
  - Electrocardiogram QT prolonged [Not Recovered/Not Resolved]
  - Bradycardia [Not Recovered/Not Resolved]
  - Diarrhoea [Recovered/Resolved]
  - Drain site complication [Not Recovered/Not Resolved]

NARRATIVE: CASE EVENT DATE: 20231212
